FAERS Safety Report 8571824-4 (Version None)
Quarter: 2012Q3

REPORT INFORMATION
  Report Type: 
  Country: None (occurrence: None)
  Receive Date: 20120724
  Receipt Date: 20120709
  Transmission Date: 20120928
  Serious: Yes (Hospitalization)
  Sender: FDA-Public Use
  Company Number: UTC-020801

PATIENT
  Age: 83 Year
  Sex: Female
  Weight: 65.9 kg

DRUGS (2)
  1. TYVASO [Suspect]
     Indication: PULMONARY ARTERIAL HYPERTENSION
     Dosage: (18 MCG),INHALATION
     Route: 055
     Dates: start: 20120705
  2. COUMADIN [Concomitant]

REACTIONS (8)
  - ASTHENIA [None]
  - OEDEMA PERIPHERAL [None]
  - MOBILITY DECREASED [None]
  - CARDIAC FAILURE CONGESTIVE [None]
  - FEELING ABNORMAL [None]
  - PULMONARY ARTERIAL HYPERTENSION [None]
  - HYPONATRAEMIA [None]
  - DECREASED APPETITE [None]
